FAERS Safety Report 6349307-1 (Version None)
Quarter: 2009Q3

REPORT INFORMATION
  Report Type: 
  Country: None (occurrence: None)
  Receive Date: 20090911
  Receipt Date: 20090902
  Transmission Date: 20100115
  Serious: Yes (Hospitalization)
  Sender: FDA-Public Use
  Company Number: B0588889A

PATIENT
  Sex: Male

DRUGS (10)
  1. AVAMYS [Suspect]
     Indication: BRONCHITIS
     Dosage: 4SPR PER DAY
     Route: 045
     Dates: start: 20090606, end: 20090707
  2. NABUCOX [Suspect]
     Dosage: 1G PER DAY
     Route: 048
     Dates: start: 20090606, end: 20090613
  3. EXOMUC [Suspect]
     Indication: BRONCHITIS
     Dosage: 200MG THREE TIMES PER DAY
     Route: 048
     Dates: start: 20090606, end: 20090613
  4. CEFUROXIM AXETIL [Suspect]
     Indication: BRONCHITIS
     Dosage: 500MG TWICE PER DAY
     Route: 048
     Dates: start: 20090606, end: 20090614
  5. ASPIRIN [Suspect]
     Dosage: 1TAB PER DAY
     Route: 048
     Dates: end: 20090621
  6. SERETIDE DISKUS [Concomitant]
     Indication: DRUG USE FOR UNKNOWN INDICATION
     Route: 065
  7. REQUIP [Concomitant]
     Indication: DRUG USE FOR UNKNOWN INDICATION
     Dosage: 2MG UNKNOWN
     Route: 065
  8. MODOPAR [Concomitant]
     Indication: DRUG USE FOR UNKNOWN INDICATION
     Dosage: 250MG UNKNOWN
     Route: 065
  9. LANSOPRAZOLE [Concomitant]
     Indication: DRUG USE FOR UNKNOWN INDICATION
     Route: 065
  10. COKENZEN [Concomitant]
     Indication: DRUG USE FOR UNKNOWN INDICATION
     Dosage: 8MG UNKNOWN
     Route: 065

REACTIONS (4)
  - ASTHMATIC CRISIS [None]
  - DYSPNOEA [None]
  - HYPOVENTILATION [None]
  - OFF LABEL USE [None]
